FAERS Safety Report 4879560-2 (Version None)
Quarter: 2006Q1

REPORT INFORMATION
  Report Type: 
  Country: None (occurrence: None)
  Receive Date: 20060113
  Receipt Date: 20060104
  Transmission Date: 20060701
  Serious: Yes (Other)
  Sender: FDA-Public Use
  Company Number: US-AMGEN-US163661

PATIENT
  Sex: Male

DRUGS (1)
  1. ARANESP [Suspect]
     Indication: RENAL TRANSPLANT
     Dates: start: 20050824, end: 20051204

REACTIONS (1)
  - APLASIA PURE RED CELL [None]
